FAERS Safety Report 4505077-0 (Version None)
Quarter: 2004Q4

REPORT INFORMATION
  Report Type: 
  Country: None (occurrence: None)
  Receive Date: 20041117
  Receipt Date: 20041117
  Transmission Date: 20050328
  Serious: Yes (Hospitalization)
  Sender: FDA-Public Use
  Company Number: None

PATIENT
  Age: 79 Year
  Sex: Male

DRUGS (13)
  1. GABAPENTIN [Suspect]
     Indication: NEUROPATHY
     Dosage: 900 MG  QD  (300 MG TID)
     Dates: start: 20040301
  2. HYOSCYAMINE [Concomitant]
  3. SERTRALINE HCL [Concomitant]
  4. HYDROCHLOROTHIAZIDE [Concomitant]
  5. TERAZOSIN HCL [Concomitant]
  6. LORATADINE [Concomitant]
  7. ZOCOR [Concomitant]
  8. LORTAB [Concomitant]
  9. NPH INSULIN [Concomitant]
  10. METOPROLOL [Concomitant]
  11. METHOCARBAMOL [Concomitant]
  12. FOSINOPRIL SODIUM [Concomitant]
  13. ZANTAC [Concomitant]

REACTIONS (3)
  - HALLUCINATION [None]
  - MUSCLE TWITCHING [None]
  - SOMNOLENCE [None]
